FAERS Safety Report 7988205-4 (Version None)
Quarter: 2011Q4

REPORT INFORMATION
  Report Type: 
  Country: None (occurrence: None)
  Receive Date: 20111216
  Receipt Date: 20101221
  Transmission Date: 20120403
  Serious: No
  Sender: FDA-Public Use
  Company Number: US-BRISTOL-MYERS SQUIBB COMPANY-15453897

PATIENT
  Sex: Female

DRUGS (3)
  1. LEXAPRO [Concomitant]
  2. EYE DROPS [Concomitant]
     Indication: GLAUCOMA
  3. ABILIFY [Suspect]
     Dates: start: 20100101

REACTIONS (1)
  - VISION BLURRED [None]
